FAERS Safety Report 16366111 (Version 1)
Quarter: 2019Q3

REPORT INFORMATION
  Report Type: Spontaneous
  Country: US (occurrence: US)
  Receive Date: 20190528
  Receipt Date: 20190528
  Transmission Date: 20191004
  Serious: No
  Sender: FDA-Public Use
  Company Number: None

PATIENT
  Age: 25 Year
  Sex: Female
  Weight: 94.5 kg

DRUGS (1)
  1. BANANA BOAT KIDS SIMPLY PROTECT SPF 50 [Suspect]
     Active Substance: AVOBENZONE\HOMOSALATE\OCTISALATE\OCTOCRYLENE
     Indication: PROPHYLAXIS AGAINST SOLAR RADIATION
     Route: 061
     Dates: start: 20190520, end: 20190524

REACTIONS (3)
  - Application site rash [None]
  - Application site swelling [None]
  - Application site pruritus [None]

NARRATIVE: CASE EVENT DATE: 20190523
